FAERS Safety Report 14710149 (Version 1)
Quarter: 2018Q2

REPORT INFORMATION
  Report Type: Spontaneous
  Country: US (occurrence: US)
  Receive Date: 20180403
  Receipt Date: 20180403
  Transmission Date: 20180711
  Serious: Yes (Other)
  Sender: FDA-Public Use
  Company Number: US-ROCHE-1907243

PATIENT
  Sex: Female

DRUGS (12)
  1. CARTIA XT [Concomitant]
     Active Substance: DILTIAZEM HYDROCHLORIDE
     Dosage: 120/24 HR
     Route: 065
  2. FLUOROURACIL CREAM [Concomitant]
     Active Substance: FLUOROURACIL
     Route: 065
  3. TAMSULOSIN [Concomitant]
     Active Substance: TAMSULOSIN
     Route: 065
  4. METFORMIN [Concomitant]
     Active Substance: METFORMIN HYDROCHLORIDE
     Route: 065
  5. FUROSEMIDE. [Concomitant]
     Active Substance: FUROSEMIDE
     Route: 065
  6. LISINOPRIL. [Concomitant]
     Active Substance: LISINOPRIL
     Route: 065
  7. WARFARIN [Concomitant]
     Active Substance: WARFARIN
     Route: 065
  8. METOPROLOL TARTRATE. [Concomitant]
     Active Substance: METOPROLOL TARTRATE
     Route: 065
  9. ERIVEDGE [Suspect]
     Active Substance: VISMODEGIB
     Indication: BASAL CELL CARCINOMA
     Route: 065
     Dates: start: 20160928
  10. ATORVASTATIN [Concomitant]
     Active Substance: ATORVASTATIN
     Route: 065
  11. GLIPIZIDE. [Concomitant]
     Active Substance: GLIPIZIDE
     Route: 065
  12. WARFARIN [Concomitant]
     Active Substance: WARFARIN
     Route: 065

REACTIONS (2)
  - Weight decreased [Not Recovered/Not Resolved]
  - Dysgeusia [Not Recovered/Not Resolved]
